FAERS Safety Report 6427977-7 (Version None)
Quarter: 2009Q4

REPORT INFORMATION
  Report Type: 
  Country: None (occurrence: None)
  Receive Date: 20091102
  Receipt Date: 20091019
  Transmission Date: 20100525
  Serious: Yes (Hospitalization, Other)
  Sender: FDA-Public Use
  Company Number: A-CH2009-28304

PATIENT
  Age: 29 Year
  Sex: Female

DRUGS (7)
  1. TRACLEER [Suspect]
     Indication: PULMONARY ARTERIAL HYPERTENSION
     Dosage: 125 MG, BID, ORAL; 125 MG, BID, ORAL
     Route: 048
  2. SILDENAFIL [Concomitant]
  3. PREDNISONE TAB [Concomitant]
  4. HYDROXYCHLOROQUINE SULFATE [Concomitant]
  5. AZATHIOPRINE [Concomitant]
  6. PHENPROCOUMON (PHENPROCOUMON) [Concomitant]
  7. HEPARIN [Concomitant]

REACTIONS (11)
  - CAESAREAN SECTION [None]
  - DISEASE PROGRESSION [None]
  - DRUG EXPOSURE DURING PREGNANCY [None]
  - DYSPNOEA [None]
  - FATIGUE [None]
  - PERICARDIAL EFFUSION [None]
  - PLEURAL EFFUSION [None]
  - PREGNANCY [None]
  - PULMONARY ARTERIAL PRESSURE INCREASED [None]
  - SYSTEMIC LUPUS ERYTHEMATOSUS [None]
  - TREATMENT NONCOMPLIANCE [None]
